FAERS Safety Report 7586728-3 (Version None)
Quarter: 2011Q3

REPORT INFORMATION
  Report Type: 
  Country: None (occurrence: None)
  Receive Date: 20110701
  Receipt Date: 20110622
  Transmission Date: 20111222
  Serious: No
  Sender: FDA-Public Use
  Company Number: US-MERCK-0710USA03060

PATIENT
  Age: 67 Year
  Sex: Female
  Weight: 69 kg

DRUGS (7)
  1. FOSAMAX [Suspect]
     Route: 048
     Dates: start: 19970918
  2. ESTROGENS (UNSPECIFIED) [Concomitant]
     Indication: HORMONE REPLACEMENT THERAPY
     Route: 065
  3. FOSAMAX [Suspect]
     Indication: OSTEOPENIA
     Route: 048
     Dates: end: 19980101
  4. FOSAMAX [Suspect]
     Route: 048
     Dates: start: 19980101, end: 20050501
  5. FOSAMAX [Suspect]
     Route: 048
     Dates: start: 19970918
  6. FOSAMAX [Suspect]
     Indication: OSTEOPOROSIS PROPHYLAXIS
     Route: 048
     Dates: end: 19980101
  7. FOSAMAX [Suspect]
     Route: 048
     Dates: start: 19980101, end: 20050501

REACTIONS (35)
  - MUSCLE SPASMS [None]
  - NEPHROLITHIASIS [None]
  - HERPES ZOSTER [None]
  - EAR DISCOMFORT [None]
  - BONE LOSS [None]
  - DYSURIA [None]
  - ABDOMINAL PAIN UPPER [None]
  - EDENTULOUS [None]
  - BURSITIS [None]
  - CATARACT [None]
  - TEMPOROMANDIBULAR JOINT SYNDROME [None]
  - PAIN IN JAW [None]
  - BACK PAIN [None]
  - INSOMNIA [None]
  - OEDEMA MOUTH [None]
  - SPINAL COLUMN STENOSIS [None]
  - TRISMUS [None]
  - INFECTION [None]
  - HYPERTENSION [None]
  - VERTIGO [None]
  - ABSCESS [None]
  - ROAD TRAFFIC ACCIDENT [None]
  - VERTIGO POSITIONAL [None]
  - DENTAL NECROSIS [None]
  - POLLAKIURIA [None]
  - BLOOD CHOLESTEROL INCREASED [None]
  - ANXIETY [None]
  - NEURALGIA [None]
  - SYNOVIAL CYST [None]
  - GINGIVAL INFECTION [None]
  - SPINAL OSTEOARTHRITIS [None]
  - JAW FRACTURE [None]
  - CERVICOBRACHIAL SYNDROME [None]
  - DEPRESSION [None]
  - FATIGUE [None]
